FAERS Safety Report 11762351 (Version 3)
Quarter: 2016Q2

REPORT INFORMATION
  Report Type: Spontaneous
  Country: US (occurrence: US)
  Receive Date: 20151120
  Receipt Date: 20160520
  Transmission Date: 20160815
  Serious: Yes (Life-Threatening, Hospitalization, Other)
  Sender: FDA-Public Use
  Company Number: US-MDT-ADR-2015-02205

PATIENT
  Age: 23 Year
  Sex: Male

DRUGS (2)
  1. BACLOFEN. [Suspect]
     Active Substance: BACLOFEN
     Dosage: 424.8 MCG/DAY
     Route: 037
  2. COMPOUNDED BACLOFEN [Suspect]
     Active Substance: BACLOFEN
     Dosage: 771.9 MCG/DAY
     Route: 037

REACTIONS (11)
  - Musculoskeletal stiffness [Unknown]
  - Agitation [Unknown]
  - Pyrexia [Unknown]
  - Muscle spasms [Unknown]
  - Gastrointestinal bacterial infection [Unknown]
  - Muscle tightness [Unknown]
  - Seizure [Unknown]
  - Clostridium difficile infection [Unknown]
  - Insomnia [Unknown]
  - Irritability [Unknown]
  - Drug withdrawal syndrome [Unknown]

NARRATIVE: CASE EVENT DATE: 20151020
